FAERS Safety Report 8219244-6 (Version None)
Quarter: 2012Q1

REPORT INFORMATION
  Report Type: 
  Country: None (occurrence: None)
  Receive Date: 20120319
  Receipt Date: 20120306
  Transmission Date: 20120608
  Serious: Yes (Life-Threatening, Other)
  Sender: FDA-Public Use
  Company Number: CA-ELI_LILLY_AND_COMPANY-CA201111002412

PATIENT
  Age: 16 Year
  Sex: Female
  Weight: 61 kg

DRUGS (5)
  1. FLUOXETINE [Concomitant]
     Dosage: 40 MG, QD
     Route: 048
     Dates: start: 20090501
  2. STRATTERA [Suspect]
     Indication: ATTENTION DEFICIT/HYPERACTIVITY DISORDER
     Dosage: 40 MG, QD
     Route: 048
     Dates: start: 20100301
  3. STRATTERA [Suspect]
     Dosage: 35 MG, UNK
  4. STRATTERA [Suspect]
     Dosage: 25 MG, UNK
  5. MELATONIN [Concomitant]
     Dosage: UNK UNK, PRN
     Route: 048

REACTIONS (1)
  - SUPRAVENTRICULAR TACHYCARDIA [None]
